FAERS Safety Report 6342791-9 (Version None)
Quarter: 2009Q3

REPORT INFORMATION
  Report Type: 
  Country: None (occurrence: None)
  Receive Date: 20090908
  Receipt Date: 20000113
  Transmission Date: 20100115
  Serious: No
  Sender: FDA-Public Use
  Company Number: US-ROCHE-96330

PATIENT
  Sex: Female
  Weight: 49.9 kg

DRUGS (3)
  1. GS4104 [Suspect]
     Indication: INFLUENZA
     Route: 048
     Dates: start: 19980108, end: 19980110
  2. GS4104 [Suspect]
     Route: 048
     Dates: start: 19980117, end: 19980129
  3. ORTHO TRI-CYCLEN [Concomitant]
     Route: 048
     Dates: start: 19970901, end: 19980301

REACTIONS (9)
  - CHILLS [None]
  - DRUG DOSE OMISSION [None]
  - DRUG EXPOSURE DURING PREGNANCY [None]
  - FATIGUE [None]
  - HEADACHE [None]
  - HOT FLUSH [None]
  - OROPHARYNGEAL PAIN [None]
  - VOMITING [None]
  - VOMITING IN PREGNANCY [None]
